FAERS Safety Report 7255599-7 (Version None)
Quarter: 2011Q1

REPORT INFORMATION
  Report Type: 
  Country: None (occurrence: None)
  Receive Date: 20110129
  Receipt Date: 20100416
  Transmission Date: 20110831
  Serious: No
  Sender: FDA-Public Use
  Company Number: US-ABBOTT-10P-163-0639946-00

PATIENT
  Sex: Female

DRUGS (6)
  1. CALCIUM [Concomitant]
     Indication: MINERAL SUPPLEMENTATION
  2. PROTONIX [Concomitant]
     Indication: PRODUCT USED FOR UNKNOWN INDICATION
  3. HUMIRA [Suspect]
     Indication: CROHN'S DISEASE
     Route: 050
     Dates: start: 20091201
  4. COUMADIN [Suspect]
     Indication: THROMBOSIS PROPHYLAXIS
     Route: 048
  5. COUMADIN [Suspect]
     Route: 048
     Dates: start: 20091201
  6. VITAMIN D [Concomitant]
     Indication: VITAMIN SUPPLEMENTATION

REACTIONS (2)
  - INJECTION SITE HAEMATOMA [None]
  - INJECTION SITE HAEMORRHAGE [None]
